FAERS Safety Report 24372851 (Version 1)
Quarter: 2024Q3

REPORT INFORMATION
  Report Type: Spontaneous
  Country: AU (occurrence: AU)
  Receive Date: 20240927
  Receipt Date: 20240927
  Transmission Date: 20241017
  Serious: Yes (Life-Threatening, Hospitalization, Other)
  Sender: RK PHARMA
  Company Number: AU-RK PHARMA, INC-20240900062

PATIENT

DRUGS (1)
  1. CARBAMAZEPINE [Suspect]
     Active Substance: CARBAMAZEPINE
     Indication: Product used for unknown indication
     Dosage: 218 MILLIGRAM/KILOGRAM, UNKNOWN
     Route: 048

REACTIONS (4)
  - Toxicity to various agents [Recovered/Resolved]
  - Condition aggravated [Recovered/Resolved]
  - Pneumonitis aspiration [Recovered/Resolved]
  - Coma scale abnormal [Recovered/Resolved]
